FAERS Safety Report 15580456 (Version 3)
Quarter: 2019Q1

REPORT INFORMATION
  Report Type: Report from Study
  Country: US (occurrence: US)
  Receive Date: 20181102
  Receipt Date: 20190221
  Transmission Date: 20190417
  Serious: Yes (Hospitalization)
  Sender: FDA-Public Use
  Company Number: US-ACTELION-A-US2018-179154

PATIENT
  Age: 41 Year
  Sex: Female

DRUGS (5)
  1. UPTRAVI [Suspect]
     Active Substance: SELEXIPAG
     Indication: PULMONARY ARTERIAL HYPERTENSION
     Dosage: 600 MCG, BID
     Route: 048
     Dates: start: 20180724
  2. UPTRAVI [Suspect]
     Active Substance: SELEXIPAG
     Dosage: 1600 MCG, BID
     Route: 048
  3. ADEMPAS [Concomitant]
     Active Substance: RIOCIGUAT
  4. OXYGEN. [Concomitant]
     Active Substance: OXYGEN
  5. OPSUMIT [Suspect]
     Active Substance: MACITENTAN
     Indication: PULMONARY ARTERIAL HYPERTENSION
     Dosage: 10 MG, QD
     Route: 048
     Dates: start: 20170822, end: 20181107

REACTIONS (9)
  - Dyspnoea [Not Recovered/Not Resolved]
  - Pain in jaw [Unknown]
  - Headache [Unknown]
  - Ill-defined disorder [Not Recovered/Not Resolved]
  - Gastric disorder [Unknown]
  - Migraine [Recovered/Resolved]
  - Diarrhoea [Recovered/Resolved]
  - Product dose omission [Not Recovered/Not Resolved]
  - Pneumonia [Recovered/Resolved]

NARRATIVE: CASE EVENT DATE: 201810
